FAERS Safety Report 9394969 (Version 2)
Quarter: 2013Q3

REPORT INFORMATION
  Report Type: Spontaneous
  Country: US (occurrence: US)
  Receive Date: 20130711
  Receipt Date: 20130729
  Transmission Date: 20140515
  Serious: No
  Sender: FDA-Public Use
  Company Number: US-ALLERGAN-1309933US

PATIENT
  Age: 86 Year
  Sex: Female
  Weight: 88.44 kg

DRUGS (5)
  1. RESTASIS? [Suspect]
     Indication: DRY EYE
     Dosage: 1 GTT, BID
     Dates: start: 200001
  2. DIGOXIN [Concomitant]
     Indication: HEART RATE IRREGULAR
     Dosage: 0.125 MG, QD
  3. ATENOLOL [Concomitant]
     Indication: PALPITATIONS
     Dosage: 25 MG, QD
  4. TRIAMTERENE AND HYDROCHLOROTHIAZIDE [Concomitant]
     Indication: HYPERTENSION
     Dosage: 325/25 MG, QD
  5. ASA [Concomitant]
     Indication: HYPERTENSION

REACTIONS (1)
  - No adverse event [Unknown]
